FAERS Safety Report 12208464 (Version 1)
Quarter: 2016Q1

REPORT INFORMATION
  Report Type: Spontaneous
  Country: US (occurrence: US)
  Receive Date: 20160324
  Receipt Date: 20160324
  Transmission Date: 20160526
  Serious: Yes (Other)
  Sender: FDA-Public Use
  Company Number: US-MDT-ADR-2016-00556

PATIENT
  Age: 52 Year
  Sex: Female

DRUGS (3)
  1. MORPHINE DRUG, UNKNOWN [Suspect]
     Active Substance: MORPHINE
     Dosage: 5.99 MG/DAY
     Route: 037
  2. BACLOFEN, UNKNOWN [Suspect]
     Active Substance: BACLOFEN
     Dosage: 19.98 MCG/DAY
     Route: 037
  3. BUPIVACAINE [Suspect]
     Active Substance: BUPIVACAINE
     Dosage: 3.59 MG/DAY
     Route: 037

REACTIONS (6)
  - Pneumonia [None]
  - Muscle spasms [None]
  - Somnolence [None]
  - Multiple sclerosis relapse [None]
  - Pyrexia [None]
  - Fatigue [None]
